FAERS Safety Report 8816475 (Version 1)
Quarter: 2012Q4

REPORT INFORMATION
  Report Type: Spontaneous
  Country: US (occurrence: None)
  Receive Date: 20120927
  Receipt Date: 20120927
  Transmission Date: 20130627
  Serious: Yes (Hospitalization, Other)
  Sender: FDA-Public Use
  Company Number: AVE_02192_2012

PATIENT
  Age: 23 Year
  Sex: Male

DRUGS (6)
  1. CLONIDINE [Suspect]
     Indication: PRODUCT USED FOR UNKNOWN INDICATION
     Dosage: df topical
     Route: 061
  2. KETAMINE [Suspect]
     Dosage: df topical
     Route: 061
  3. GABAPENTIN [Suspect]
     Dosage: df topical
     Route: 061
  4. IMIPRAMINE [Suspect]
     Dosage: df topical
     Route: 061
  5. LIDOCAINE [Suspect]
     Dosage: df topical
     Route: 061
  6. MEFENAMIC ACID [Suspect]
     Dosage: df topical
     Route: 061

REACTIONS (16)
  - Drug screen positive [None]
  - Bradycardia [None]
  - Hypotension [None]
  - Hypothermia [None]
  - Mydriasis [None]
  - Rash [None]
  - Rash [None]
  - Electrocardiogram QRS complex prolonged [None]
  - Subarachnoid haemorrhage [None]
  - Antidepressant drug level increased [None]
  - Toxicity to various agents [None]
  - Incorrect dose administered [None]
  - Product compounding quality issue [None]
  - Electrocardiogram QT prolonged [None]
  - Drug level decreased [None]
  - Urine amphetamine positive [None]
